FAERS Safety Report 20751222 (Version 1)
Quarter: 2022Q2

REPORT INFORMATION
  Report Type: Spontaneous
  Country: GR (occurrence: GR)
  Receive Date: 20220426
  Receipt Date: 20220426
  Transmission Date: 20220720
  Serious: Yes (Other)
  Sender: FDA-Public Use
  Company Number: GR-AMGEN-GRCSP2022070390

PATIENT
  Age: 60 Year
  Sex: Male

DRUGS (2)
  1. CARFILZOMIB [Suspect]
     Active Substance: CARFILZOMIB
     Indication: Plasma cell myeloma
     Dosage: UNK
     Route: 065
  2. LENALIDOMIDE [Concomitant]
     Active Substance: LENALIDOMIDE
     Indication: Plasma cell myeloma
     Dosage: UNK

REACTIONS (6)
  - Metastases to meninges [Unknown]
  - Hypoaesthesia [Unknown]
  - Gait disturbance [Unknown]
  - Urinary tract disorder [Unknown]
  - Nervous system disorder [Unknown]
  - Plasma cells present [Recovered/Resolved]

NARRATIVE: CASE EVENT DATE: 20201001
